FAERS Safety Report 7230654-6 (Version None)
Quarter: 2011Q1

REPORT INFORMATION
  Report Type: 
  Country: None (occurrence: None)
  Receive Date: 20110118
  Receipt Date: 20110107
  Transmission Date: 20110831
  Serious: Yes (Hospitalization)
  Sender: FDA-Public Use
  Company Number: US-PERRIGO-11US000243

PATIENT
  Age: 45 Year
  Sex: Male

DRUGS (20)
  1. CLOPIDOGREL [Concomitant]
     Dosage: 75 MG, QD
     Route: 065
  2. POTASSIUM [Concomitant]
     Indication: ELECTROLYTE SUBSTITUTION THERAPY
     Route: 065
  3. EPINEPHRINE [Concomitant]
     Indication: CARDIAC ARREST
     Route: 065
  4. WARFARIN [Concomitant]
     Indication: PRODUCT USED FOR UNKNOWN INDICATION
     Dosage: UNK
     Route: 065
  5. ROCURONIUM BROMIDE [Concomitant]
     Indication: SEDATION
     Route: 065
  6. SIMVASTATIN [Suspect]
     Indication: DYSLIPIDAEMIA
     Dosage: 40 MG, QD
     Route: 048
  7. CARVEDILOL [Concomitant]
     Indication: PRODUCT USED FOR UNKNOWN INDICATION
     Dosage: UNK
     Route: 048
  8. CLOPIDOGREL [Concomitant]
     Indication: PRODUCT USED FOR UNKNOWN INDICATION
     Dosage: 300 MG, SINGLE
     Route: 065
  9. ASPIRIN [Concomitant]
     Indication: PRODUCT USED FOR UNKNOWN INDICATION
     Dosage: 352 MG, QD
     Route: 065
  10. MIDAZOLAM [Concomitant]
     Indication: SEDATION
     Route: 065
  11. ATROPINE [Concomitant]
     Indication: CARDIAC ARREST
     Route: 065
  12. FUROSEMIDE [Concomitant]
     Indication: PRODUCT USED FOR UNKNOWN INDICATION
     Dosage: UNK
     Route: 065
  13. MAGNESIUM [Concomitant]
     Indication: ELECTROLYTE SUBSTITUTION THERAPY
     Route: 065
  14. HEPARIN [Concomitant]
     Indication: CARDIAC ARREST
     Route: 065
  15. SIMVASTATIN [Suspect]
     Dosage: 80 MG, QD HS
     Route: 048
  16. HYDRALAZINE HCL [Concomitant]
     Indication: PRODUCT USED FOR UNKNOWN INDICATION
     Dosage: UNK
     Route: 065
  17. FENTANYL-100 [Concomitant]
     Indication: SEDATION
     Route: 065
  18. SPIRONOLACTONE [Concomitant]
     Indication: PRODUCT USED FOR UNKNOWN INDICATION
     Dosage: UNK
     Route: 065
  19. ISOSORBIDE MONONITRATE [Concomitant]
     Indication: PRODUCT USED FOR UNKNOWN INDICATION
     Dosage: UNK
     Route: 065
  20. QUINAPRIL [Concomitant]
     Indication: PRODUCT USED FOR UNKNOWN INDICATION
     Dosage: UNK
     Route: 065

REACTIONS (3)
  - DRUG CLEARANCE DECREASED [None]
  - DRUG INTERACTION [None]
  - RHABDOMYOLYSIS [None]
